FAERS Safety Report 15929219 (Version 1)
Quarter: 2019Q1

REPORT INFORMATION
  Report Type: Spontaneous
  Country: IN (occurrence: IN)
  Receive Date: 20190206
  Receipt Date: 20190206
  Transmission Date: 20190417
  Serious: Yes (Death, Hospitalization)
  Sender: FDA-Public Use
  Company Number: IN-HONG KONG KING-FRIEND INDUSTRIAL COMPANY-2019NKF00002

PATIENT
  Age: 4 Year
  Sex: Female

DRUGS (4)
  1. BLEOMYCIN [Suspect]
     Active Substance: BLEOMYCIN SULFATE
     Indication: SCLEROTHERAPY
     Dosage: 5 U, THREE TIMES
     Route: 042
  2. LIPIODOL [Suspect]
     Active Substance: ETHIODIZED OIL
     Indication: MALFORMATION VENOUS
  3. BLEOMYCIN [Suspect]
     Active Substance: BLEOMYCIN SULFATE
     Indication: MALFORMATION VENOUS
  4. LIPIODOL [Suspect]
     Active Substance: ETHIODIZED OIL
     Indication: SCLEROTHERAPY
     Dosage: 2 ML, ONCE
     Route: 042

REACTIONS (6)
  - Septic shock [Fatal]
  - Pulmonary embolism [None]
  - Interstitial lung disease [None]
  - Toxicity to various agents [None]
  - Pulmonary toxicity [Fatal]
  - Pneumonia [Fatal]
